FAERS Safety Report 16712741 (Version 1)
Quarter: 2019Q3

REPORT INFORMATION
  Report Type: Spontaneous
  Country: GB (occurrence: GB)
  Receive Date: 20190817
  Receipt Date: 20190817
  Transmission Date: 20191004
  Serious: Yes (Other)
  Sender: FDA-Public Use
  Company Number: GB-009507513-1908GBR005225

PATIENT
  Age: 29 Year
  Sex: Female
  Weight: 57 kg

DRUGS (4)
  1. LEVEMIR [Concomitant]
     Active Substance: INSULIN DETEMIR
     Dosage: UNK
  2. AMITRIPTYLINE HYDROCHLORIDE. [Concomitant]
     Active Substance: AMITRIPTYLINE HYDROCHLORIDE
     Dosage: UNK
  3. NEXPLANON [Suspect]
     Active Substance: ETONOGESTREL
     Indication: CONTRACEPTION
     Dosage: RIGHT ARM
     Route: 059
     Dates: start: 20170622
  4. IVABRADINE [Concomitant]
     Active Substance: IVABRADINE
     Dosage: UNK

REACTIONS (3)
  - Drug ineffective [Unknown]
  - Vaginal haemorrhage [Unknown]
  - Pregnancy with implant contraceptive [Unknown]
